FAERS Safety Report 26074705 (Version 7)
Quarter: 2025Q4

REPORT INFORMATION
  Report Type: Report from Study
  Country: EU (occurrence: EU)
  Receive Date: 20251121
  Receipt Date: 20251226
  Transmission Date: 20260118
  Serious: Yes (Other)
  Sender: ABBVIE
  Company Number: EU-ABBVIE-6539273

PATIENT
  Age: 63 Year
  Sex: Female

DRUGS (14)
  1. CARBIDOPA\LEVODOPA [Suspect]
     Active Substance: CARBIDOPA\LEVODOPA
     Indication: Parkinson^s disease
     Dosage: DOSE: 1 CASETTE?MORNING DOSE 7ML ADMINISTERED.?MORNING DOSE REDUCED FROM 7ML TO 6.8ML, NO CHANGE ...
     Route: 050
     Dates: start: 20251103
  2. CARBIDOPA\LEVODOPA [Suspect]
     Active Substance: CARBIDOPA\LEVODOPA
     Dosage: DOSE REDUCE 6.7ML MORNING DOSE 0.5ML CONTINUOUS DOSE
     Route: 050
     Dates: start: 20251119
  3. DULOXETINE [Concomitant]
     Active Substance: DULOXETINE
     Indication: Product used for unknown indication
  4. TRIMETHOPRIM [Concomitant]
     Active Substance: TRIMETHOPRIM
     Indication: Product used for unknown indication
  5. AZILECT [Concomitant]
     Active Substance: RASAGILINE MESYLATE
     Indication: Product used for unknown indication
  6. ROSUVASTATIN [Concomitant]
     Active Substance: ROSUVASTATIN
     Indication: Product used for unknown indication
  7. PREGABALIN [Concomitant]
     Active Substance: PREGABALIN
     Indication: Product used for unknown indication
  8. ROPINIROLE [Concomitant]
     Active Substance: ROPINIROLE
     Indication: Product used for unknown indication
  9. SINEMET [Concomitant]
     Active Substance: CARBIDOPA\LEVODOPA
     Indication: Product used for unknown indication
     Dosage: TIME INTERVAL: 0.33333333 DAYS: DOSE: 12.5/50MG X2
  10. AUGMENTIN [Concomitant]
     Active Substance: AMOXICILLIN\CLAVULANATE POTASSIUM
     Indication: Product used for unknown indication
     Route: 042
  11. Taz [Concomitant]
     Indication: Product used for unknown indication
     Route: 042
  12. BUTRANS [Concomitant]
     Active Substance: BUPRENORPHINE
     Indication: Product used for unknown indication
  13. Solpadeine [Concomitant]
     Indication: Product used for unknown indication
     Dosage: ROA: OTHER
  14. EXELON [Concomitant]
     Active Substance: RIVASTIGMINE TARTRATE
     Indication: Product used for unknown indication
     Dosage: ROA:?OTHER

REACTIONS (22)
  - Gastrostomy [Unknown]
  - Pain in extremity [Not Recovered/Not Resolved]
  - Arthralgia [Not Recovered/Not Resolved]
  - Hallucination, visual [Unknown]
  - Stoma site discharge [Unknown]
  - Dyskinesia [Not Recovered/Not Resolved]
  - Musculoskeletal stiffness [Recovering/Resolving]
  - Gait disturbance [Unknown]
  - Fatigue [Unknown]
  - Dyspnoea exertional [Unknown]
  - Cognitive disorder [Unknown]
  - Back pain [Recovering/Resolving]
  - C-reactive protein increased [Unknown]
  - Post procedural oedema [Unknown]
  - Post procedural discomfort [Unknown]
  - Abdominal discomfort [Unknown]
  - Post procedural contusion [Unknown]
  - Blood pressure increased [Unknown]
  - Confusional state [Unknown]
  - Disorientation [Unknown]
  - Cognitive disorder [Not Recovered/Not Resolved]
  - Arthralgia [Recovered/Resolved]

NARRATIVE: CASE EVENT DATE: 20250101
